FAERS Safety Report 9452655 (Version 1)
Quarter: 2013Q3

REPORT INFORMATION
  Report Type: Report from Study
  Country: US (occurrence: US)
  Receive Date: 20130812
  Receipt Date: 20130812
  Transmission Date: 20140515
  Serious: Yes (Hospitalization)
  Sender: FDA-Public Use
  Company Number: US-ROCHE-1258299

PATIENT
  Sex: Male

DRUGS (5)
  1. LUCENTIS [Suspect]
     Indication: DIABETIC RETINOPATHY
     Dosage: OU
     Route: 031
     Dates: start: 20120605, end: 20120605
  2. LUCENTIS [Suspect]
     Indication: MACULAR OEDEMA
     Route: 031
     Dates: start: 20120924, end: 20120924
  3. LUCENTIS [Suspect]
     Dosage: OU
     Route: 065
     Dates: start: 20121231, end: 20121231
  4. LUCENTIS [Suspect]
     Dosage: OU
     Route: 065
     Dates: start: 20130225, end: 20130225
  5. LUCENTIS [Suspect]
     Dosage: OU
     Route: 065
     Dates: start: 20130401, end: 20130401

REACTIONS (5)
  - Fluid retention [Unknown]
  - Renal failure [Unknown]
  - Vitreous floaters [Unknown]
  - Visual impairment [Unknown]
  - Photopsia [Unknown]
